FAERS Safety Report 23747853 (Version 1)
Quarter: 2024Q2

REPORT INFORMATION
  Report Type: Spontaneous
  Country: US (occurrence: None)
  Receive Date: 20240415
  Receipt Date: 20240415
  Transmission Date: 20240716
  Serious: Yes (Disabling)
  Sender: FDA-Public Use
  Company Number: None

PATIENT
  Age: 58 Year
  Sex: Male
  Weight: 81 kg

DRUGS (20)
  1. RECLAST [Suspect]
     Active Substance: ZOLEDRONIC ACID
     Indication: Osteopenia
     Dates: start: 20240307
  2. REMICADE [Concomitant]
     Active Substance: INFLIXIMAB
  3. ALPRAZOLAM [Concomitant]
     Active Substance: ALPRAZOLAM
  4. LOSARTAN [Concomitant]
     Active Substance: LOSARTAN
  5. LEVOTHYROXINE [Concomitant]
     Active Substance: LEVOTHYROXINE\LEVOTHYROXINE SODIUM
  6. FENOBIBRATE [Concomitant]
     Active Substance: FENOFIBRATE
  7. VITAMIN D [Concomitant]
     Active Substance: VITAMIN D NOS
  8. VITAMIN D [Concomitant]
     Active Substance: VITAMIN D NOS
  9. FAMOTIDINE [Concomitant]
     Active Substance: FAMOTIDINE
  10. GABAPENTIN [Concomitant]
     Active Substance: GABAPENTIN
  11. METHYLPREDNISOLONE [Concomitant]
     Active Substance: METHYLPREDNISOLONE
  12. CYCLOBENZAPRINE [Concomitant]
     Active Substance: CYCLOBENZAPRINE
  13. SM [Concomitant]
  14. IBUPROFEN [Concomitant]
     Active Substance: IBUPROFEN
  15. DEVICE [Concomitant]
     Active Substance: DEVICE
  16. VITAMIN B12 [Concomitant]
     Active Substance: CYANOCOBALAMIN
  17. VITAMINS [Concomitant]
     Active Substance: VITAMINS
  18. HERBALS\TURMERIC [Concomitant]
     Active Substance: HERBALS\TURMERIC
  19. Glucos-Chondroit-MSM [Concomitant]
  20. TART CHERRY [Concomitant]

REACTIONS (4)
  - Influenza like illness [None]
  - Sinusitis [None]
  - Urinary tract infection [None]
  - Acute kidney injury [None]

NARRATIVE: CASE EVENT DATE: 20240402
